FAERS Safety Report 24806737 (Version 1)
Quarter: 2025Q1

REPORT INFORMATION
  Report Type: Spontaneous
  Country: TH (occurrence: TH)
  Receive Date: 20250104
  Receipt Date: 20250104
  Transmission Date: 20250409
  Serious: Yes (Hospitalization, Other)
  Sender: MACLEODS
  Company Number: TH-MACLEODS PHARMA-MAC2024050884

PATIENT

DRUGS (1)
  1. CLOBETASOL [Suspect]
     Active Substance: CLOBETASOL
     Indication: Dermatitis diaper
     Route: 061

REACTIONS (5)
  - Adrenal insufficiency [Recovering/Resolving]
  - Hypothalamic pituitary adrenal axis suppression [Recovering/Resolving]
  - Hypertension [Recovered/Resolved]
  - Intentional product misuse to child [Unknown]
  - Cushing^s syndrome [Recovering/Resolving]
